FAERS Safety Report 7794378-9 (Version None)
Quarter: 2011Q4

REPORT INFORMATION
  Report Type: 
  Country: None (occurrence: None)
  Receive Date: 20111004
  Receipt Date: 20110921
  Transmission Date: 20120403
  Serious: Yes (Hospitalization, Other)
  Sender: FDA-Public Use
  Company Number: US-ELI_LILLY_AND_COMPANY-US201108003688

PATIENT
  Sex: Female
  Weight: 48.073 kg

DRUGS (25)
  1. FORTEO [Suspect]
     Indication: OSTEOPOROSIS
     Dosage: 20 UG, QD
     Route: 065
     Dates: start: 20101101
  2. FORTEO [Suspect]
     Dosage: 20 UG, QD
     Route: 065
  3. FORTEO [Suspect]
     Dosage: 20 UG, QD
     Route: 065
  4. PLETAL [Concomitant]
     Indication: THROMBOSIS PROPHYLAXIS
     Dosage: 50 MG, BID
     Route: 048
  5. OS-CAL 500 + D [Concomitant]
     Dosage: 1 DF, QD
     Route: 048
  6. MINOCYCLINE HCL [Concomitant]
     Dosage: 100 MG, QD
     Route: 048
  7. SENOKOT                            /00571901/ [Concomitant]
     Indication: CONSTIPATION
     Dosage: 8.6 MG, Q HS
     Route: 048
  8. BENEFIBER [Concomitant]
     Indication: CONSTIPATION
     Dosage: 3 MG, QD
     Route: 048
  9. XANAX [Concomitant]
     Indication: GENERALISED ANXIETY DISORDER
     Dosage: 0.25 MG, QHS
     Route: 048
  10. MULTI-VITAMIN [Concomitant]
     Dosage: 1 DF, QD
     Route: 048
  11. LOVENOX [Concomitant]
     Indication: THROMBOSIS PROPHYLAXIS
     Dosage: 30 MG, QD
     Route: 058
  12. FLEXERIL [Concomitant]
     Indication: MUSCLE SPASMS
     Dosage: 10 MG, Q HS
     Route: 048
  13. FORTAZ [Concomitant]
     Dosage: 1 G, Q 12HRS
  14. VANCOMYCIN [Concomitant]
     Dosage: UNK, Q HS
  15. MOISTURE [Concomitant]
  16. EXELON [Concomitant]
     Dosage: 9.5 MG, UNK
     Route: 061
  17. REMERON [Concomitant]
     Indication: DEPRESSION
     Dosage: 30 MG, Q HS
     Route: 048
  18. PERCOCET-5 [Concomitant]
     Indication: PAIN
     Dosage: UNK, 1-2 TBS Q 4HRS PRN
     Route: 048
  19. TYLENOL (CAPLET) [Concomitant]
     Dosage: 650 MG, Q4HRS PRN
     Route: 048
  20. CIPROFLOXACIN [Concomitant]
     Dosage: UNK, BID
     Route: 048
  21. LACTINEX [Concomitant]
     Indication: DIARRHOEA
     Dosage: 1 DF, BID
  22. KLOR-CON [Concomitant]
     Indication: HYPOKALAEMIA
     Dosage: 10 MEQ, BID
     Route: 048
  23. OXYCONTIN [Concomitant]
     Indication: PAIN
     Dosage: 15 MG, Q HS
     Route: 048
  24. FLEXERIL [Concomitant]
     Dosage: 5 MG, QD
     Route: 048
  25. TRAZODONE HYDROCHLORIDE [Concomitant]
     Indication: INSOMNIA
     Dosage: 50 MG, QHS
     Route: 048

REACTIONS (4)
  - OSTEOMYELITIS [None]
  - MYOCARDIAL INFARCTION [None]
  - LIMB OPERATION [None]
  - FRACTURE NONUNION [None]
